FAERS Safety Report 9584040 (Version 1)
Quarter: 2013Q4

REPORT INFORMATION
  Report Type: Spontaneous
  Country: US (occurrence: US)
  Receive Date: 20131002
  Receipt Date: 20131002
  Transmission Date: 20140711
  Serious: No
  Sender: FDA-Public Use
  Company Number: US-AMGEN-USASP2013049834

PATIENT
  Age: 51 Year
  Sex: Male
  Weight: 83.9 kg

DRUGS (16)
  1. ENBREL [Suspect]
     Indication: RHEUMATOID ARTHRITIS
     Dosage: UNK
     Route: 065
     Dates: start: 20070101, end: 20080101
  2. ALPRAZOLAM [Concomitant]
     Dosage: UNK
  3. ASPIRIN [Concomitant]
     Dosage: UNK
  4. VITAMIN B-12 [Concomitant]
     Dosage: UNK
  5. CALCIUM WITH VITAMIN D             /00944201/ [Concomitant]
     Dosage: UNK
  6. CLARITIN                           /00917501/ [Concomitant]
     Dosage: UNK
  7. FOLIC ACID [Concomitant]
     Dosage: UNK
  8. LIPITOR [Concomitant]
     Dosage: UNK
  9. LISINOPRIL [Concomitant]
     Dosage: UNK
  10. MEGAVITE RX [Concomitant]
     Dosage: UNK
  11. METHOTREXATE [Concomitant]
     Dosage: UNK
  12. METOPROLOL [Concomitant]
     Dosage: UNK
  13. MULTIVITAMINS, PLAIN [Concomitant]
     Dosage: UNK
  14. NEXIUM                             /01479302/ [Concomitant]
     Dosage: UNK
  15. PREDNISONE [Concomitant]
     Dosage: UNK
  16. TRAMADOL [Concomitant]
     Dosage: UNK

REACTIONS (5)
  - Drug effect decreased [Recovered/Resolved]
  - Condition aggravated [Recovered/Resolved]
  - Myalgia [Recovered/Resolved]
  - Pain [Recovered/Resolved]
  - Musculoskeletal stiffness [Recovered/Resolved]
